FAERS Safety Report 16759344 (Version 9)
Quarter: 2021Q4

REPORT INFORMATION
  Report Type: Report from Study
  Country: JP (occurrence: JP)
  Receive Date: 20190830
  Receipt Date: 20211126
  Transmission Date: 20220303
  Serious: Yes (Hospitalization, Other)
  Sender: FDA-Public Use
  Company Number: JP-TAKEDA-2019TJP019721AA

PATIENT
  Age: 78 Year
  Sex: Male
  Weight: 71.9 kg

DRUGS (9)
  1. LEUPLIN [Suspect]
     Active Substance: LEUPROLIDE ACETATE
     Indication: Bulbospinal muscular atrophy congenital
     Dosage: 11.25 MILLIGRAM, Q3MONTHS
     Route: 058
     Dates: start: 20171128, end: 20200730
  2. RIVOTRIL [Suspect]
     Active Substance: CLONAZEPAM
     Indication: Blepharospasm
     Dosage: 1 MILLIGRAM, QD
     Route: 048
     Dates: start: 20160520
  3. RIVOTRIL [Suspect]
     Active Substance: CLONAZEPAM
     Indication: Tremor
     Dosage: 0.5 MILLIGRAM
     Route: 065
  4. RIVOTRIL [Suspect]
     Active Substance: CLONAZEPAM
     Dosage: 1 MILLIGRAM
     Route: 065
  5. METHYLCOBALAMIN [Concomitant]
     Active Substance: METHYLCOBALAMIN
     Indication: Product used for unknown indication
     Dosage: 1000 MICROGRAM
     Route: 065
  6. MUCOSAL [Concomitant]
     Indication: Product used for unknown indication
     Dosage: 45 MILLIGRAM
     Route: 065
  7. MUCOSAL [Concomitant]
     Dosage: 30 MILLIGRAM
     Route: 065
  8. OXYBUTYNIN CHLORIDE [Concomitant]
     Active Substance: OXYBUTYNIN CHLORIDE
     Indication: Neurogenic bladder
     Dosage: 2 MILLIGRAM
     Route: 065
  9. OXYBUTYNIN CHLORIDE [Concomitant]
     Active Substance: OXYBUTYNIN CHLORIDE
     Dosage: 4 MILLIGRAM
     Route: 065

REACTIONS (2)
  - Spinal compression fracture [Recovering/Resolving]
  - Fall [Recovering/Resolving]

NARRATIVE: CASE EVENT DATE: 20190317
